FAERS Safety Report 15888298 (Version 2)
Quarter: 2019Q1

REPORT INFORMATION
  Report Type: Spontaneous
  Country: US (occurrence: US)
  Receive Date: 20190130
  Receipt Date: 20190206
  Transmission Date: 20190417
  Serious: Yes (Other)
  Sender: FDA-Public Use
  Company Number: US-ASTRAZENECA-2018SF26501

PATIENT
  Age: 25513 Day

DRUGS (29)
  1. NEXIUM [Suspect]
     Active Substance: ESOMEPRAZOLE MAGNESIUM
     Route: 048
     Dates: start: 200708, end: 201605
  2. AMITRIPTYLINE [Concomitant]
     Active Substance: AMITRIPTYLINE
  3. AZELASTINE. [Concomitant]
     Active Substance: AZELASTINE HYDROCHLORIDE
  4. SUCRALFATE. [Concomitant]
     Active Substance: SUCRALFATE
  5. GENERLAC [Concomitant]
     Active Substance: LACTULOSE
  6. NOVOLOG [Concomitant]
     Active Substance: INSULIN ASPART
  7. CARDIZEM [Concomitant]
     Active Substance: DILTIAZEM HYDROCHLORIDE
  8. ATORVASTATIN [Concomitant]
     Active Substance: ATORVASTATIN
  9. ASPIRIN. [Concomitant]
     Active Substance: ASPIRIN
  10. FLUTICASONE. [Concomitant]
     Active Substance: FLUTICASONE
  11. AMITRIPTYLINE [Concomitant]
     Active Substance: AMITRIPTYLINE
  12. CLOPIDOGREL [Concomitant]
     Active Substance: CLOPIDOGREL BISULFATE
  13. RIVAROXABAN [Concomitant]
     Active Substance: RIVAROXABAN
  14. GLUCOSAMINE [Concomitant]
     Active Substance: GLUCOSAMINE
  15. PROMETHAZINE [Concomitant]
     Active Substance: PROMETHAZINE\PROMETHAZINE HYDROCHLORIDE
  16. MORPHINE SULPHATE [Concomitant]
     Active Substance: MORPHINE SULFATE
  17. FLOMAX [Concomitant]
     Active Substance: TAMSULOSIN HYDROCHLORIDE
  18. LEVOTHYROXINE. [Concomitant]
     Active Substance: LEVOTHYROXINE
  19. DEXILANT [Suspect]
     Active Substance: DEXLANSOPRAZOLE
     Route: 065
     Dates: start: 20150605
  20. TRAZODONE [Concomitant]
     Active Substance: TRAZODONE HYDROCHLORIDE
  21. MIRALAX [Concomitant]
     Active Substance: POLYETHYLENE GLYCOL 3350
  22. GEMFIBROZIL. [Concomitant]
     Active Substance: GEMFIBROZIL
  23. DEXILANT [Suspect]
     Active Substance: DEXLANSOPRAZOLE
     Route: 065
     Dates: start: 200708, end: 201605
  24. SPIRONOLACTONE. [Concomitant]
     Active Substance: SPIRONOLACTONE
  25. PROTONIX [Suspect]
     Active Substance: PANTOPRAZOLE SODIUM
     Route: 065
     Dates: start: 200708, end: 201605
  26. ADVAIR HFA [Concomitant]
     Active Substance: FLUTICASONE PROPIONATE\SALMETEROL XINAFOATE
  27. BUMETANIDE. [Concomitant]
     Active Substance: BUMETANIDE
  28. ALLOPURINOL. [Concomitant]
     Active Substance: ALLOPURINOL
  29. NEBIVOLOL. [Concomitant]
     Active Substance: NEBIVOLOL

REACTIONS (3)
  - Chronic kidney disease [Unknown]
  - Nephrogenic anaemia [Unknown]
  - Acute kidney injury [Unknown]

NARRATIVE: CASE EVENT DATE: 20150605
